FAERS Safety Report 4432156-9 (Version None)
Quarter: 2004Q3

REPORT INFORMATION
  Report Type: 
  Country: None (occurrence: None)
  Receive Date: 20040818
  Receipt Date: 20040805
  Transmission Date: 20050211
  Serious: Yes (Other)
  Sender: FDA-Public Use
  Company Number: 2004053865

PATIENT
  Age: 29 Year
  Sex: Female
  Weight: 66.2252 kg

DRUGS (7)
  1. ZOLOFT [Suspect]
     Indication: POST-TRAUMATIC STRESS DISORDER
     Dosage: 100 MG (100 MG, 1 IN 1 D), ORAL
     Route: 048
     Dates: start: 20031201
  2. ZYRTEC [Suspect]
     Indication: HYPERSENSITIVITY
     Dosage: 10 MG (10 MG, 1 IN 1 AS NECESSARY), ORAL
     Route: 048
  3. BACLOFEN [Concomitant]
  4. TOPIRAMATE [Concomitant]
  5. CYANOCOBALAMIN (CYANOCOBALAMIN) [Concomitant]
  6. FOLIC ACID [Concomitant]
  7. EPINEPHRINE [Concomitant]

REACTIONS (7)
  - CONVULSION [None]
  - DRUG EFFECT DECREASED [None]
  - DRUG INTERACTION [None]
  - DYSURIA [None]
  - HOARSENESS [None]
  - MICTURITION DISORDER [None]
  - URINARY TRACT INFECTION [None]
